FAERS Safety Report 9405266 (Version 1)
Quarter: 2013Q3

REPORT INFORMATION
  Report Type: Spontaneous
  Country: US (occurrence: US)
  Receive Date: 20130717
  Receipt Date: 20130717
  Transmission Date: 20140515
  Serious: No
  Sender: FDA-Public Use
  Company Number: US-TEVA-419363USA

PATIENT
  Sex: Male

DRUGS (1)
  1. QVAR [Suspect]
     Dosage: 4 PUFFS BEFORE BEDTIME

REACTIONS (2)
  - Decreased appetite [Recovered/Resolved]
  - Off label use [Unknown]
